FAERS Safety Report 6021571-8 (Version None)
Quarter: 2008Q4

REPORT INFORMATION
  Report Type: 
  Country: None (occurrence: None)
  Receive Date: 20081229
  Receipt Date: 20081219
  Transmission Date: 20090506
  Serious: Yes (Other)
  Sender: FDA-Public Use
  Company Number: PHHY2008JP31577

PATIENT
  Age: 80 Year

DRUGS (3)
  1. ZOMETA [Suspect]
     Indication: MULTIPLE MYELOMA
     Dosage: 16 MG (4 TIMES OF 4 MG)
     Route: 042
  2. AREDIA [Suspect]
     Indication: MULTIPLE MYELOMA
     Dosage: 585 MG (13 TIMES OF 45 MG)
     Route: 042
  3. THALIDOMIDE [Concomitant]
     Indication: MULTIPLE MYELOMA

REACTIONS (2)
  - BONE LESION [None]
  - OSTEONECROSIS [None]
